FAERS Safety Report 19003740 (Version 1)
Quarter: 2021Q1

REPORT INFORMATION
  Report Type: Spontaneous
  Country: GB (occurrence: GB)
  Receive Date: 20210312
  Receipt Date: 20210312
  Transmission Date: 20210420
  Serious: Yes (Other)
  Sender: FDA-Public Use
  Company Number: GB-PFIZER INC-2021222601

PATIENT
  Age: 37 Year
  Sex: Female
  Weight: 78.46 kg

DRUGS (2)
  1. DOXYCYCLINE MONOHYDRATE [Suspect]
     Active Substance: DOXYCYCLINE
     Indication: BRONCHITIS
     Dosage: 1 DF, 2X/DAY
     Route: 048
     Dates: start: 20180321, end: 20180321
  2. CIPROFLOXACIN. [Suspect]
     Active Substance: CIPROFLOXACIN
     Indication: LOWER RESPIRATORY TRACT INFECTION
     Dosage: UNK (2 ON 1ST DAY THEN 1 A DAY FOR 5 DAYS)
     Route: 048
     Dates: start: 20180327, end: 20180327

REACTIONS (7)
  - Urticaria [Recovered/Resolved with Sequelae]
  - Dizziness [Recovered/Resolved with Sequelae]
  - Pruritus [Recovered/Resolved with Sequelae]
  - Dyspnoea [Recovered/Resolved with Sequelae]
  - Drug hypersensitivity [Recovered/Resolved with Sequelae]
  - Hallucination [Recovered/Resolved with Sequelae]
  - Blister [Recovered/Resolved with Sequelae]
